FAERS Safety Report 7953272-0 (Version None)
Quarter: 2011Q4

REPORT INFORMATION
  Report Type: 
  Country: None (occurrence: None)
  Receive Date: 20111201
  Receipt Date: 20111117
  Transmission Date: 20120403
  Serious: Yes (Other)
  Sender: FDA-Public Use
  Company Number: NL-MYLANLABS-2011S1023830

PATIENT
  Age: 44 Year
  Sex: Male

DRUGS (1)
  1. FEXOFENADINE [Suspect]
     Indication: CONJUNCTIVITIS ALLERGIC
     Dosage: 180 MG
     Route: 048
     Dates: start: 20100531, end: 20111004

REACTIONS (2)
  - VISION BLURRED [None]
  - MIGRAINE [None]
